FAERS Safety Report 6510021-0 (Version None)
Quarter: 2009Q4

REPORT INFORMATION
  Report Type: 
  Country: None (occurrence: None)
  Receive Date: 20091222
  Receipt Date: 20091216
  Transmission Date: 20100525
  Serious: Yes (Death)
  Sender: FDA-Public Use
  Company Number: JP-ROCHE-675727

PATIENT
  Sex: Male
  Weight: 55 kg

DRUGS (10)
  1. AVASTIN [Suspect]
     Indication: RECTAL CANCER METASTATIC
     Route: 041
     Dates: start: 20090729, end: 20091112
  2. AVASTIN [Suspect]
     Route: 041
     Dates: start: 20091126, end: 20091126
  3. XELODA [Suspect]
     Indication: RECTAL CANCER METASTATIC
     Route: 048
     Dates: start: 20091126, end: 20091206
  4. ELPLAT [Concomitant]
     Route: 041
     Dates: start: 20090729, end: 20091112
  5. ELPLAT [Concomitant]
     Route: 041
     Dates: start: 20091126, end: 20091126
  6. FLUOROURACIL [Concomitant]
     Route: 042
     Dates: start: 20090729, end: 20091112
  7. ISOVORIN [Concomitant]
     Route: 041
     Dates: start: 20090729, end: 20091112
  8. KYTRIL [Concomitant]
     Route: 042
     Dates: start: 20091126, end: 20091126
  9. DECADRON [Concomitant]
     Route: 042
     Dates: start: 20091126, end: 20091126
  10. OXYCONTIN [Concomitant]
     Route: 048
     Dates: start: 20091126, end: 20091206

REACTIONS (2)
  - INTERSTITIAL LUNG DISEASE [None]
  - PNEUMONIA [None]
